FAERS Safety Report 20913596 (Version 1)
Quarter: 2022Q2

REPORT INFORMATION
  Report Type: Spontaneous
  Country: GB (occurrence: GB)
  Receive Date: 20220604
  Receipt Date: 20220604
  Transmission Date: 20220721
  Serious: Yes (Other)
  Sender: FDA-Public Use
  Company Number: GB-002147023-NVSC2022GB114889

PATIENT
  Sex: Female

DRUGS (1)
  1. IMATINIB [Suspect]
     Active Substance: IMATINIB
     Indication: Chronic myeloid leukaemia
     Dosage: UNK
     Route: 065
     Dates: start: 20200306, end: 20200805

REACTIONS (5)
  - Oedema [Unknown]
  - Treatment failure [Unknown]
  - Pleural effusion [Unknown]
  - Drug resistance [Unknown]
  - Thrombocytopenia [Unknown]
